FAERS Safety Report 4699615-5 (Version None)
Quarter: 2005Q2

REPORT INFORMATION
  Report Type: 
  Country: None (occurrence: None)
  Receive Date: 20050623
  Receipt Date: 20050614
  Transmission Date: 20051028
  Serious: Yes (Other)
  Sender: FDA-Public Use
  Company Number: 2005076798

PATIENT
  Age: 94 Year
  Sex: Female

DRUGS (19)
  1. NORVASC [Suspect]
     Indication: HYPERTENSION
     Dosage: 1.25 MG (DAILY),ORAL;5 MG (DAILY),ORAL;2.5 MG (AS NEEDED),ORAL;5 MG (BID),ORAL
     Route: 048
     Dates: start: 20041126, end: 20050507
  2. NORVASC [Suspect]
     Indication: HYPERTENSION
     Dosage: 1.25 MG (DAILY),ORAL;5 MG (DAILY),ORAL;2.5 MG (AS NEEDED),ORAL;5 MG (BID),ORAL
     Route: 048
     Dates: start: 20050508, end: 20050515
  3. NORVASC [Suspect]
     Indication: HYPERTENSION
     Dosage: 1.25 MG (DAILY),ORAL;5 MG (DAILY),ORAL;2.5 MG (AS NEEDED),ORAL;5 MG (BID),ORAL
     Route: 048
     Dates: start: 20050516, end: 20050516
  4. NORVASC [Suspect]
     Indication: HYPERTENSION
     Dosage: 1.25 MG (DAILY),ORAL;5 MG (DAILY),ORAL;2.5 MG (AS NEEDED),ORAL;5 MG (BID),ORAL
     Route: 048
     Dates: start: 20050517
  5. LANIRAPID (METILDIGOXIN) [Suspect]
     Indication: ATRIAL FIBRILLATION
     Dosage: 0.1 MG (QD), ORAL;1 TABLET (PRN),ORAL
     Route: 048
     Dates: start: 20041226, end: 20050513
  6. LANIRAPID (METILDIGOXIN) [Suspect]
     Indication: ATRIAL FIBRILLATION
     Dosage: 0.1 MG (QD), ORAL;1 TABLET (PRN),ORAL
     Route: 048
     Dates: start: 20050515
  7. NU LOTAN (LOSARTAN POTASSIUM) [Concomitant]
  8. COVERSYL (PERINDOPRIL) [Concomitant]
  9. BASEN (VOGLIBOSE) [Concomitant]
  10. NATEGLINIDE [Concomitant]
  11. EUGLUCON (GLIBENCLAMIDE) [Concomitant]
  12. LANIRAPID (METILDOGOXIN) [Concomitant]
  13. MILLISROL (GLYCERYL TRINITRATE) [Concomitant]
  14. ISOSORBIDE DINITRATE [Concomitant]
  15. LAC B (LACTOBACILLUS BIFIDUS, LYOPHILIZED) [Concomitant]
  16. MAGNESIUM OXIDE (MAGNESIUM OXIDE) [Concomitant]
  17. CELLKAM (DIAZEPAM) [Concomitant]
  18. CIPROFLOXACIN HYDROCHLORIDE [Concomitant]
  19. SORBITOL D (SORBITOL) [Concomitant]

REACTIONS (13)
  - ATRIAL FIBRILLATION [None]
  - ATRIOVENTRICULAR BLOCK COMPLETE [None]
  - AUTONOMIC NERVOUS SYSTEM IMBALANCE [None]
  - BLADDER DISORDER [None]
  - BLOOD PRESSURE INCREASED [None]
  - CARDIAC ASTHMA [None]
  - CHLAMYDIAL INFECTION [None]
  - DECUBITUS ULCER [None]
  - DEHYDRATION [None]
  - DEMENTIA [None]
  - ORAL INTAKE REDUCED [None]
  - PNEUMONIA [None]
  - URINARY TRACT INFECTION [None]
